FAERS Safety Report 9764184 (Version 2)
Quarter: 2014Q1

REPORT INFORMATION
  Report Type: Spontaneous
  Country: SE (occurrence: SE)
  Receive Date: 20131216
  Receipt Date: 20140131
  Transmission Date: 20141002
  Serious: Yes (Life-Threatening)
  Sender: FDA-Public Use
  Company Number: PHHY2013SE146419

PATIENT
  Sex: Male

DRUGS (1)
  1. RITALIN [Suspect]
     Indication: ATTENTION DEFICIT/HYPERACTIVITY DISORDER
     Dosage: 60 MG, UNK

REACTIONS (7)
  - Head injury [Recovered/Resolved]
  - Loss of consciousness [Recovered/Resolved]
  - Brain injury [Recovered/Resolved]
  - Subdural haemorrhage [Recovered/Resolved]
  - Diffuse axonal injury [Recovered/Resolved]
  - Road traffic accident [Recovered/Resolved]
  - Cerebral haemorrhage [Recovered/Resolved]
